FAERS Safety Report 9097345 (Version 1)
Quarter: 2013Q1

REPORT INFORMATION
  Report Type: Spontaneous
  Country: NL (occurrence: NL)
  Receive Date: 20130212
  Receipt Date: 20130212
  Transmission Date: 20140127
  Serious: No
  Sender: FDA-Public Use
  Company Number: NL-BAXTER-2013BAX005123

PATIENT
  Age: 54 Year
  Sex: Female

DRUGS (3)
  1. METRONIDAZOL [Suspect]
     Indication: GIARDIASIS
     Route: 065
  2. DIAZEPAM [Concomitant]
     Indication: PRODUCT USED FOR UNKNOWN INDICATION
     Route: 065
  3. CODEINE [Concomitant]
     Indication: PRODUCT USED FOR UNKNOWN INDICATION
     Route: 065

REACTIONS (13)
  - Sleep disorder [Recovered/Resolved]
  - Headache [Recovered/Resolved]
  - Hallucination [Recovered/Resolved]
  - Confusional state [Recovered/Resolved]
  - Abdominal distension [Recovered/Resolved]
  - Dystonia [Recovered/Resolved]
  - Oedema peripheral [Recovered/Resolved]
  - Disturbance in attention [Recovered/Resolved]
  - Nervous system disorder [Recovered/Resolved]
  - Angina pectoris [Recovered/Resolved]
  - Muscle spasms [Recovered/Resolved]
  - Chills [Recovered/Resolved]
  - Pain in extremity [Recovered/Resolved]
